FAERS Safety Report 10347828 (Version 1)
Quarter: 2014Q3

REPORT INFORMATION
  Report Type: Spontaneous
  Country: US (occurrence: US)
  Receive Date: 20140729
  Receipt Date: 20140729
  Transmission Date: 20150326
  Serious: Yes (Hospitalization, Other)
  Sender: FDA-Public Use
  Company Number: US-PFIZER INC-2014207371

PATIENT
  Age: 90 Year
  Sex: Female

DRUGS (1)
  1. CADUET [Suspect]
     Active Substance: AMLODIPINE BESYLATE\ATORVASTATIN CALCIUM
     Dosage: UNK
     Dates: start: 1999

REACTIONS (7)
  - Urinary tract infection [Recovered/Resolved]
  - Dysstasia [Unknown]
  - Somnolence [Not Recovered/Not Resolved]
  - Lethargy [Unknown]
  - Asthenia [Not Recovered/Not Resolved]
  - Personality change [Unknown]
  - Gait disturbance [Unknown]
